FAERS Safety Report 14274791 (Version 5)
Quarter: 2018Q3

REPORT INFORMATION
  Report Type: Report from Study
  Country: AT (occurrence: AT)
  Receive Date: 20171212
  Receipt Date: 20180709
  Transmission Date: 20181010
  Serious: Yes (Other)
  Sender: FDA-Public Use
  Company Number: AT-PFIZER INC-2017522192

PATIENT
  Age: 44 Year
  Sex: Female
  Weight: 48 kg

DRUGS (28)
  1. GEMCITABINE HYDROCHLORIDE. [Suspect]
     Active Substance: GEMCITABINE HYDROCHLORIDE
     Indication: PANCREATIC CARCINOMA
     Dosage: 1494 MG/M2, UNK
     Dates: start: 20170323
  2. ABRAXANE [Suspect]
     Active Substance: PACLITAXEL
     Dosage: 151 MG/M2, UNK
     Route: 041
     Dates: start: 20170620, end: 20170829
  3. NEON [Concomitant]
     Dosage: UNK
  4. ZOFRAN [Concomitant]
     Active Substance: ONDANSETRON HYDROCHLORIDE
     Dosage: UNK, 1X/DAY
  5. TRITTICO [Concomitant]
     Active Substance: TRAZODONE HYDROCHLORIDE
     Dosage: 150 MG, 1X/DAY
  6. GEMCITABINE HYDROCHLORIDE. [Suspect]
     Active Substance: GEMCITABINE HYDROCHLORIDE
     Dosage: 1511 MG/M2, UNK
     Dates: start: 20170323
  7. ABRAXANE [Suspect]
     Active Substance: PACLITAXEL
     Dosage: 191 MG/M2, UNK
     Route: 041
     Dates: start: 20170323
  8. ABRAXANE [Suspect]
     Active Substance: PACLITAXEL
     Dosage: 189 MG/M2, UNK
     Route: 041
     Dates: start: 20170420
  9. ABRAXANE [Suspect]
     Active Substance: PACLITAXEL
     Dosage: 151 MG/M2, UNK
     Route: 041
     Dates: start: 20170523
  10. XANAX [Concomitant]
     Active Substance: ALPRAZOLAM
     Dosage: 0.5 MG, UNK
  11. NOVALGIN /00169801/ [Concomitant]
     Active Substance: ACETAMINOPHEN\CAFFEINE\PROPYPHENAZONE
     Dosage: 756?500 MILLIGRAM
  12. GEMCITABINE HYDROCHLORIDE. [Suspect]
     Active Substance: GEMCITABINE HYDROCHLORIDE
     Dosage: 1491 MG/M2, UNK
     Dates: start: 20170420
  13. ABRAXANE [Suspect]
     Active Substance: PACLITAXEL
     Dosage: 151 MG/M2, UNK
     Route: 041
     Dates: start: 20170420
  14. CONCOR [Concomitant]
     Active Substance: BISOPROLOL FUMARATE
     Dosage: 5 MG, UNK
  15. GEMCITABINE HYDROCHLORIDE. [Suspect]
     Active Substance: GEMCITABINE HYDROCHLORIDE
     Dosage: 1211 MG/M2, UNK
     Dates: start: 20170523
  16. GEMCITABINE HYDROCHLORIDE. [Suspect]
     Active Substance: GEMCITABINE HYDROCHLORIDE
     Dosage: 1233 MG/M2, UNK
     Dates: start: 20170620
  17. LOVENOX [Concomitant]
     Active Substance: ENOXAPARIN SODIUM
     Dosage: 80 MG, UNK
     Dates: start: 20170420, end: 20170508
  18. LOVENOX [Concomitant]
     Active Substance: ENOXAPARIN SODIUM
     Dosage: 60 MG, UNK
     Dates: start: 20170509
  19. PANTOLOC [Concomitant]
     Active Substance: PANTOPRAZOLE SODIUM
     Dosage: 40 MG, 1X/DAY
  20. GEMCITABINE HYDROCHLORIDE. [Suspect]
     Active Substance: GEMCITABINE HYDROCHLORIDE
     Dosage: 1226 MG/M2, UNK
     Dates: start: 20170620
  21. ABRAXANE [Suspect]
     Active Substance: PACLITAXEL
     Dosage: 151 MG/M2, UNK
     Route: 041
     Dates: start: 20170323
  22. ABRAXANE [Suspect]
     Active Substance: PACLITAXEL
     Dosage: 97 MG/M2, UNK
     Route: 041
     Dates: start: 20170523
  23. GEMCITABINE HYDROCHLORIDE. [Suspect]
     Active Substance: GEMCITABINE HYDROCHLORIDE
     Dosage: 1536 MG/M2, UNK
     Dates: start: 20170420
  24. GEMCITABINE HYDROCHLORIDE. [Suspect]
     Active Substance: GEMCITABINE HYDROCHLORIDE
     Dosage: 1199 MG/M2, UNK
     Dates: start: 20170523
  25. GEMCITABINE HYDROCHLORIDE. [Suspect]
     Active Substance: GEMCITABINE HYDROCHLORIDE
     Dosage: 1226 MG/M2, UNK
     Dates: start: 20170523
  26. GEMCITABINE HYDROCHLORIDE. [Suspect]
     Active Substance: GEMCITABINE HYDROCHLORIDE
     Dosage: 1176 MG/M2, UNK
     Dates: start: 20170620
  27. ABRAXANE [Suspect]
     Active Substance: PACLITAXEL
     Indication: PANCREATIC CARCINOMA
     Dosage: 189 MG/M2, UNK
     Route: 041
     Dates: start: 20170323
  28. MOVICOL [Suspect]
     Active Substance: POLYETHYLENE GLYCOL 3350\POTASSIUM CHLORIDE\SODIUM BICARBONATE\SODIUM CHLORIDE
     Dosage: UNK

REACTIONS (5)
  - Polyneuropathy [Recovered/Resolved]
  - Liver function test increased [Recovered/Resolved]
  - Thrombocytopenia [Recovered/Resolved]
  - Diarrhoea [Recovered/Resolved]
  - Neoplasm progression [Unknown]

NARRATIVE: CASE EVENT DATE: 20170330
